FAERS Safety Report 7535842-7 (Version None)
Quarter: 2011Q2

REPORT INFORMATION
  Report Type: 
  Country: None (occurrence: None)
  Receive Date: 20110607
  Receipt Date: 20110607
  Transmission Date: 20111010
  Serious: No
  Sender: FDA-Public Use
  Company Number: None

PATIENT
  Age: 7 Year
  Sex: Female
  Weight: 20.4119 kg

DRUGS (1)
  1. AURODRI USE 4-5 DROPS INSIGHT PHARMACEUTICAL COMP [Suspect]
     Indication: MIDDLE EAR EFFUSION
     Dosage: 4-5 DROPS
     Dates: start: 20110604, end: 20110604

REACTIONS (4)
  - SCREAMING [None]
  - PAIN [None]
  - EMOTIONAL DISTRESS [None]
  - BURNING SENSATION [None]
